FAERS Safety Report 18051822 (Version 1)
Quarter: 2020Q3

REPORT INFORMATION
  Report Type: Spontaneous
  Country: BG (occurrence: BG)
  Receive Date: 20200721
  Receipt Date: 20200721
  Transmission Date: 20201103
  Serious: Yes (Other)
  Sender: FDA-Public Use
  Company Number: BG-BAUSCH-BL-2020-020085

PATIENT
  Age: 3 Year
  Sex: Male

DRUGS (16)
  1. SYAFEN [Concomitant]
     Indication: GAIT INABILITY
  2. CEFZIL [Concomitant]
     Active Substance: CEFPROZIL
     Indication: MUSCULAR WEAKNESS
  3. SYAFEN [Concomitant]
     Indication: PAIN IN EXTREMITY
  4. METHYLPREDNISOLONE. [Suspect]
     Active Substance: METHYLPREDNISOLONE
     Indication: HAEMOPHAGOCYTIC LYMPHOHISTIOCYTOSIS
     Dosage: AFTER THE THIRD DAY, TREATMENT IS CONTINUED WITH A DOSE 2 MG/KG/24 H FOR ANOTHER 2 DAYS
     Route: 042
  5. SYAFEN [Concomitant]
     Indication: PAIN IN EXTREMITY
  6. SYAFEN [Concomitant]
     Indication: PYREXIA
  7. PREDNISOLON [Suspect]
     Active Substance: PREDNISOLONE
     Indication: HAEMOPHAGOCYTIC LYMPHOHISTIOCYTOSIS
     Route: 065
  8. SYAFEN [Concomitant]
     Indication: RASH MACULO-PAPULAR
  9. CEFZIL [Concomitant]
     Active Substance: CEFPROZIL
     Indication: GAIT INABILITY
  10. CEFZIL [Concomitant]
     Active Substance: CEFPROZIL
     Indication: PYREXIA
  11. SYAFEN [Concomitant]
     Indication: MUSCULAR WEAKNESS
  12. CEFZIL [Concomitant]
     Active Substance: CEFPROZIL
     Indication: PAIN IN EXTREMITY
  13. VANCOMYCIN [Concomitant]
     Active Substance: VANCOMYCIN
     Indication: STREPTOCOCCAL SEPSIS
  14. MEROPENEM. [Concomitant]
     Active Substance: MEROPENEM
     Indication: STREPTOCOCCAL SEPSIS
  15. CEFZIL [Concomitant]
     Active Substance: CEFPROZIL
     Indication: PAIN IN EXTREMITY
  16. CEFZIL [Concomitant]
     Active Substance: CEFPROZIL
     Indication: RASH MACULO-PAPULAR

REACTIONS (8)
  - Rash maculo-papular [Recovered/Resolved]
  - Hepatomegaly [Recovered/Resolved]
  - Splenomegaly [Recovered/Resolved]
  - Haemophagocytic lymphohistiocytosis [Recovered/Resolved]
  - Skin irritation [Recovered/Resolved]
  - Drug hypersensitivity [Recovered/Resolved]
  - Urticaria [Recovered/Resolved]
  - Rash erythematous [Recovered/Resolved]
